FAERS Safety Report 20409815 (Version 2)
Quarter: 2022Q1

REPORT INFORMATION
  Report Type: Spontaneous
  Country: IT (occurrence: IT)
  Receive Date: 20220201
  Receipt Date: 20220219
  Transmission Date: 20220424
  Serious: Yes (Life-Threatening, Hospitalization, Other)
  Sender: FDA-Public Use
  Company Number: IT-MLMSERVICE-20220118-3318826-1

PATIENT
  Age: 56 Year
  Sex: Male
  Weight: 83 kg

DRUGS (2)
  1. FUROSEMIDE [Suspect]
     Active Substance: FUROSEMIDE
     Indication: Cardiac failure congestive
     Dosage: STRENGTH: 20 MG, 40 MG PER DAY (TWO 20 MG AMPOULES DAILY)
     Route: 042
     Dates: start: 20190417, end: 20190419
  2. ENOXAPARIN [Concomitant]
     Active Substance: ENOXAPARIN
     Indication: Thrombosis prophylaxis
     Dates: start: 2019

REACTIONS (6)
  - Intracranial hypotension [Recovered/Resolved]
  - Pupils unequal [Recovered/Resolved]
  - Mydriasis [Recovered/Resolved]
  - Brain herniation [Recovered/Resolved]
  - Nervous system disorder [Recovered/Resolved]
  - Coma [Recovered/Resolved]

NARRATIVE: CASE EVENT DATE: 20190419
